FAERS Safety Report 6293314-4 (Version None)
Quarter: 2009Q3

REPORT INFORMATION
  Report Type: 
  Country: None (occurrence: None)
  Receive Date: 20090731
  Receipt Date: 20090717
  Transmission Date: 20100115
  Serious: Yes (Hospitalization)
  Sender: FDA-Public Use
  Company Number: FR-GENENTECH-287508

PATIENT
  Age: 69 Year
  Sex: Male

DRUGS (2)
  1. XOLAIR [Suspect]
     Indication: ASTHMA
     Dosage: 375 MG, Q15D
     Route: 058
     Dates: start: 20090408
  2. XOLAIR [Suspect]
     Dosage: 375 MG, Q15D
     Route: 058
     Dates: start: 20090701

REACTIONS (2)
  - AMNESIA [None]
  - UNEVALUABLE EVENT [None]
